FAERS Safety Report 6339720-0 (Version None)
Quarter: 2009Q3

REPORT INFORMATION
  Report Type: 
  Country: None (occurrence: None)
  Receive Date: 20090903
  Receipt Date: 20090821
  Transmission Date: 20100115
  Serious: Yes (Other)
  Sender: FDA-Public Use
  Company Number: US-ELI_LILLY_AND_COMPANY-US200908005644

PATIENT
  Age: 78 Year
  Sex: Female

DRUGS (9)
  1. CYMBALTA [Suspect]
     Dosage: 60 MG, UNK
     Dates: start: 20090724, end: 20090817
  2. REMERON [Concomitant]
     Dosage: 1 D/F, UNK
  3. DEPAKOTE [Concomitant]
     Dosage: 1 D/F, UNK
  4. NAMENDA [Concomitant]
     Dosage: 1 D/F, UNK
  5. DURAGESIC-100 [Concomitant]
     Dosage: 1 D/F, UNK
  6. TYLENOL                                 /SCH/ [Concomitant]
     Dosage: 1 D/F, UNK
  7. LACTULOSE [Concomitant]
     Dosage: 1 D/F, UNK
  8. VERAPAMIL [Concomitant]
     Dosage: 1 D/F, 4/D
  9. LORAZEPAM [Concomitant]
     Dosage: 1 D/F, UNK

REACTIONS (2)
  - DRUG INEFFECTIVE [None]
  - NEURODEGENERATIVE DISORDER [None]
